FAERS Safety Report 14408627 (Version 1)
Quarter: 2018Q1

REPORT INFORMATION
  Report Type: Spontaneous
  Country: US (occurrence: US)
  Receive Date: 20180118
  Receipt Date: 20180118
  Transmission Date: 20180509
  Serious: Yes (Death)
  Sender: FDA-Public Use
  Company Number: US-ENDO PHARMACEUTICALS INC-2018-013403

PATIENT
  Age: 38 Year
  Sex: Female

DRUGS (2)
  1. MORPHINE SULFATE ER [Suspect]
     Active Substance: MORPHINE SULFATE
     Indication: PRODUCT USED FOR UNKNOWN INDICATION
     Dosage: UNK UNK, PARENTERAL+UNKNOWN
  2. HYPOCHLORITE [Suspect]
     Active Substance: HYPOCHLORITE ION
     Indication: PRODUCT USED FOR UNKNOWN INDICATION
     Dosage: UNK UNK, PARENTERAL+UNKNOWN

REACTIONS (2)
  - Completed suicide [Fatal]
  - Cardio-respiratory arrest [Fatal]
